FAERS Safety Report 17835557 (Version 1)
Quarter: 2020Q2

REPORT INFORMATION
  Report Type: Report from Study
  Country: CO (occurrence: CO)
  Receive Date: 20200528
  Receipt Date: 20200528
  Transmission Date: 20200714
  Serious: Yes (Hospitalization)
  Sender: FDA-Public Use
  Company Number: NVSC2018CO004148

PATIENT

DRUGS (1)
  1. EXJADE [Suspect]
     Active Substance: DEFERASIROX
     Indication: APLASTIC ANAEMIA
     Dosage: 2 DF, QD
     Route: 048

REACTIONS (3)
  - Colitis [Unknown]
  - Gastrointestinal infection [Unknown]
  - Product use in unapproved indication [Unknown]
